FAERS Safety Report 5737003-0 (Version None)
Quarter: 2008Q2

REPORT INFORMATION
  Report Type: 
  Country: None (occurrence: None)
  Receive Date: 20080512
  Receipt Date: 20080512
  Transmission Date: 20081010
  Serious: Yes (Other)
  Sender: FDA-Public Use
  Company Number: None

PATIENT
  Sex: Female
  Weight: 74.3899 kg

DRUGS (1)
  1. LYRICA [Suspect]
     Dosage: QD ORAL
     Route: 048
     Dates: start: 20080101, end: 20080201

REACTIONS (4)
  - BLOOD CHOLESTEROL INCREASED [None]
  - INCREASED APPETITE [None]
  - JOINT SWELLING [None]
  - WEIGHT INCREASED [None]
